FAERS Safety Report 6434886-6 (Version None)
Quarter: 2009Q4

REPORT INFORMATION
  Report Type: 
  Country: None (occurrence: None)
  Receive Date: 20091109
  Receipt Date: 20091109
  Transmission Date: 20100525
  Serious: Yes (Life-Threatening, Hospitalization, Disabling, Other)
  Sender: FDA-Public Use
  Company Number: None

PATIENT
  Age: 53 Year
  Sex: Female
  Weight: 117.9352 kg

DRUGS (1)
  1. VANCOMYCIN [Suspect]

REACTIONS (2)
  - DIALYSIS [None]
  - UNEVALUABLE EVENT [None]
